FAERS Safety Report 11672035 (Version 1)
Quarter: 2015Q4

REPORT INFORMATION
  Report Type: Report from Study
  Country: US (occurrence: US)
  Receive Date: 20151028
  Receipt Date: 20151028
  Transmission Date: 20160304
  Serious: Yes (Other)
  Sender: FDA-Public Use
  Company Number: PHEH2014US006425

PATIENT
  Age: 45 Year
  Sex: Male

DRUGS (4)
  1. MYFORTIC [Suspect]
     Active Substance: MYCOPHENOLATE SODIUM
     Indication: RENAL TRANSPLANT
     Dosage: 720 MG, BID
     Route: 048
  2. MYFORTIC [Suspect]
     Active Substance: MYCOPHENOLATE SODIUM
     Dosage: 360 MG, UNK
     Route: 048
  3. NEORAL [Suspect]
     Active Substance: CYCLOSPORINE
     Indication: RENAL TRANSPLANT
     Dosage: 50 MG, BID
     Route: 048
  4. NEORAL [Suspect]
     Active Substance: CYCLOSPORINE
     Dosage: 125 MG, (100 MG AND 25 MG)
     Route: 048

REACTIONS (20)
  - Dyspepsia [Unknown]
  - Haematuria [Unknown]
  - White blood cell disorder [Unknown]
  - Red blood cell abnormality [Unknown]
  - Monocyte count increased [Unknown]
  - Occult blood positive [Unknown]
  - Blood glucose increased [Unknown]
  - Red cell distribution width increased [Unknown]
  - Blood glucose decreased [Not Recovered/Not Resolved]
  - Weight fluctuation [Unknown]
  - Glomerular filtration rate decreased [Unknown]
  - Blood creatinine increased [Not Recovered/Not Resolved]
  - Haemorrhage [Unknown]
  - Nephrolithiasis [Unknown]
  - Glycosylated haemoglobin increased [Unknown]
  - Sinus headache [Unknown]
  - Haematocrit increased [Unknown]
  - Blood urea increased [Unknown]
  - Hypersensitivity [Unknown]
  - Contusion [Unknown]

NARRATIVE: CASE EVENT DATE: 20140404
